FAERS Safety Report 4269529-3 (Version None)
Quarter: 2004Q1

REPORT INFORMATION
  Report Type: 
  Country: None (occurrence: None)
  Receive Date: 20040113
  Receipt Date: 20031111
  Transmission Date: 20041129
  Serious: Yes (Other)
  Sender: FDA-Public Use
  Company Number: PHFR2003GB04395

PATIENT
  Age: 55 Year
  Sex: Male

DRUGS (6)
  1. CLOZARIL [Suspect]
     Indication: SCHIZOPHRENIA
     Dosage: 300MG/DAY
     Route: 048
     Dates: start: 20031022
  2. GLYBURIDE [Concomitant]
     Indication: DIABETES MELLITUS NON-INSULIN-DEPENDENT
     Dosage: 15MG/DAY
     Route: 048
  3. METFORMIN [Concomitant]
     Indication: DIABETES MELLITUS NON-INSULIN-DEPENDENT
     Dosage: 2G/DAY
     Route: 048
  4. PERINDOPRIL [Concomitant]
     Dosage: 4MG/DAY
     Route: 048
  5. LACTULOSE [Concomitant]
     Route: 048
  6. ASPIRIN [Concomitant]
     Route: 048

REACTIONS (4)
  - CONSTIPATION [None]
  - LYMPHOCYTIC LEUKAEMIA [None]
  - LYMPHOCYTOSIS [None]
  - URINARY INCONTINENCE [None]
